FAERS Safety Report 21490281 (Version 2)
Quarter: 2025Q3

REPORT INFORMATION
  Report Type: Spontaneous
  Country: EU (occurrence: EU)
  Receive Date: 20221021
  Receipt Date: 20250930
  Transmission Date: 20251020
  Serious: Yes (Life-Threatening, Hospitalization, Other)
  Sender: NOVARTIS
  Company Number: EU-NOVARTISPH-NVSC2022IT232859

PATIENT
  Age: 69 Year
  Sex: Female

DRUGS (6)
  1. CYCLOSPORINE [Suspect]
     Active Substance: CYCLOSPORINE
     Indication: Immunosuppressant drug therapy
     Dosage: 150 MG, QD
     Route: 065
     Dates: start: 201712, end: 201804
  2. AZATHIOPRINE [Suspect]
     Active Substance: AZATHIOPRINE
     Indication: Immunosuppressant drug therapy
     Dosage: 100 MG, QD
     Route: 065
     Dates: start: 201804
  3. PREDNISONE [Suspect]
     Active Substance: PREDNISONE
     Indication: Immunosuppressant drug therapy
     Dosage: 50 MG, QD
     Route: 065
     Dates: start: 201712
  4. PREDNISONE [Suspect]
     Active Substance: PREDNISONE
     Dosage: 37.5 MG, QD
     Route: 065
     Dates: start: 201712
  5. PREDNISONE [Suspect]
     Active Substance: PREDNISONE
     Dosage: 12.5 MG, QD
     Route: 065
     Dates: start: 201712
  6. PREDNISONE [Suspect]
     Active Substance: PREDNISONE
     Dosage: 50 MG, QD
     Route: 065
     Dates: start: 201712

REACTIONS (2)
  - Hypertensive crisis [Unknown]
  - Product use in unapproved indication [Unknown]

NARRATIVE: CASE EVENT DATE: 20180101
